FAERS Safety Report 7888819-6 (Version None)
Quarter: 2011Q4

REPORT INFORMATION
  Report Type: 
  Country: None (occurrence: None)
  Receive Date: 20111031
  Receipt Date: 20111020
  Transmission Date: 20120403
  Serious: Yes (Other)
  Sender: FDA-Public Use
  Company Number: 2011SP046207

PATIENT
  Age: 27 Year
  Sex: Male

DRUGS (3)
  1. TRILAFON [Concomitant]
  2. SAPHRIS [Suspect]
     Indication: SCHIZOPHRENIA
     Dosage: 10 MG;HS;SL
     Route: 060
     Dates: start: 20110915, end: 20110916
  3. PREVACID [Concomitant]

REACTIONS (5)
  - ANGIOEDEMA [None]
  - INSOMNIA [None]
  - FLUSHING [None]
  - AKATHISIA [None]
  - FEELING ABNORMAL [None]
